FAERS Safety Report 14649223 (Version 1)
Quarter: 2018Q1

REPORT INFORMATION
  Report Type: Spontaneous
  Country: US (occurrence: US)
  Receive Date: 20180316
  Receipt Date: 20180316
  Transmission Date: 20180509
  Serious: No
  Sender: FDA-Public Use
  Company Number: US-JUBILANT CADISTA PHARMACEUTICALS-2018JUB00029

PATIENT
  Sex: Female

DRUGS (3)
  1. IRBESARTAN. [Suspect]
     Active Substance: IRBESARTAN
     Indication: HYPERTENSION
     Dosage: 75 MG, 2X/DAY
     Route: 048
     Dates: start: 2017
  2. AMLODIPINE (ASCEND) [Concomitant]
     Dosage: 2.5 MG, 1X/DAY IN THE EVENING
     Route: 048
  3. AMLODIPINE (ASCEND) [Concomitant]
     Dosage: 5 MG, 1X/DAY IN THE MORNING
     Route: 048

REACTIONS (4)
  - Lipase increased [Unknown]
  - Rash pruritic [Not Recovered/Not Resolved]
  - Amylase increased [Unknown]
  - Urticaria [Not Recovered/Not Resolved]

NARRATIVE: CASE EVENT DATE: 201801
